FAERS Safety Report 8313834 (Version 7)
Quarter: 2012Q4

REPORT INFORMATION
  Report Type: 
  Country: US (occurrence: US)
  Receive Date: 20111228
  Receipt Date: 20121221
  Transmission Date: 20130627
  Serious: Yes (Other)
  Sender: FDA-Public Use
  Company Number: US-JNJFOC-20111104017

PATIENT
  Sex: Female

DRUGS (12)
  1. TOPAMAX [Suspect]
     Indication: MIGRAINE
     Route: 048
     Dates: start: 20080617, end: 20080717
  2. TOPAMAX [Suspect]
     Indication: MIGRAINE
     Route: 048
     Dates: start: 200704, end: 200801
  3. TYLENOL/CODEINE [Suspect]
     Indication: MIGRAINE
     Route: 048
  4. HYDROCODONE [Suspect]
     Indication: MIGRAINE
     Route: 065
  5. ZANTAC [Suspect]
     Indication: PRODUCT USED FOR UNKNOWN INDICATION
     Route: 065
  6. NORVASC [Suspect]
     Indication: PRODUCT USED FOR UNKNOWN INDICATION
  7. PRILOSEC [Suspect]
     Indication: PRODUCT USED FOR UNKNOWN INDICATION
  8. ANTIVERT [Suspect]
     Indication: PRODUCT USED FOR UNKNOWN INDICATION
  9. RELPAX [Suspect]
     Indication: PRODUCT USED FOR UNKNOWN INDICATION
  10. CLINDAMYCIN [Concomitant]
     Indication: INFECTION
     Route: 065
  11. ALDOMET [Concomitant]
     Indication: HYPERTENSION
     Route: 065
  12. PRENATAL VITAMIN [Concomitant]

REACTIONS (5)
  - Exposure during pregnancy [Recovered/Resolved]
  - Foetal hypokinesia [Recovered/Resolved]
  - Premature labour [Recovered/Resolved]
  - Depression [Not Recovered/Not Resolved]
  - Stress [Unknown]
